FAERS Safety Report 5812672-5 (Version None)
Quarter: 2008Q3

REPORT INFORMATION
  Report Type: 
  Country: None (occurrence: None)
  Receive Date: 20080714
  Receipt Date: 20080701
  Transmission Date: 20090109
  Serious: Yes (Hospitalization)
  Sender: FDA-Public Use
  Company Number: 2008017617

PATIENT
  Sex: Male

DRUGS (1)
  1. LUDEN'S HONEY LEMON THROAT DROPS (MENTHOL) [Suspect]
     Dosage: UNSPECIFIED, UNKNOWN

REACTIONS (2)
  - LUNG DISORDER [None]
  - PHARMACEUTICAL PRODUCT COMPLAINT [None]
